FAERS Safety Report 23633675 (Version 3)
Quarter: 2024Q4

REPORT INFORMATION
  Report Type: Spontaneous
  Country: ES (occurrence: ES)
  Receive Date: 20240314
  Receipt Date: 20241026
  Transmission Date: 20250115
  Serious: Yes (Other)
  Sender: SANDOZ
  Company Number: ES-EMA-DD-20240227-7482831-163720

PATIENT
  Sex: Male

DRUGS (21)
  1. BUDESONIDE [Suspect]
     Active Substance: BUDESONIDE
     Indication: Product used for unknown indication
     Route: 065
  2. BUSULFAN [Suspect]
     Active Substance: BUSULFAN
     Indication: Prophylaxis against graft versus host disease
     Route: 065
  3. CYCLOSPORINE [Suspect]
     Active Substance: CYCLOSPORINE
     Indication: Product used for unknown indication
     Dosage: UNK, DURING SECOND PERIPHERAL BLOOD HSCT
     Route: 065
  4. CYCLOPHOSPHAMIDE [Suspect]
     Active Substance: CYCLOPHOSPHAMIDE
     Indication: Acute lymphocytic leukaemia (in remission)
     Dosage: DURING SECOND HSCT
     Route: 065
  5. CYCLOPHOSPHAMIDE [Suspect]
     Active Substance: CYCLOPHOSPHAMIDE
     Indication: Bone marrow conditioning regimen
     Dosage: UNK, AS PER SHOP/ALL 2008 PROTOCOL
     Route: 065
  6. CYCLOPHOSPHAMIDE [Suspect]
     Active Substance: CYCLOPHOSPHAMIDE
     Indication: Acute lymphocytic leukaemia refractory
  7. CYTARABINE [Suspect]
     Active Substance: CYTARABINE
     Indication: Acute lymphocytic leukaemia (in remission)
     Route: 065
  8. CLOFARABINE [Suspect]
     Active Substance: CLOFARABINE
     Indication: Acute graft versus host disease in skin
     Route: 065
  9. ETOPOSIDE [Suspect]
     Active Substance: ETOPOSIDE
     Indication: Product used for unknown indication
     Route: 065
  10. FLUDARABINE [Suspect]
     Active Substance: FLUDARABINE PHOSPHATE
     Indication: Product used for unknown indication
     Route: 065
  11. METHOTREXATE [Suspect]
     Active Substance: METHOTREXATE
     Indication: Bone marrow conditioning regimen
     Dosage: UNK
     Route: 065
  12. MYCOPHENOLATE MOFETIL [Suspect]
     Active Substance: MYCOPHENOLATE MOFETIL
     Indication: Acute graft versus host disease in skin
     Dosage: UNK
     Route: 065
  13. MYCOPHENOLATE MOFETIL [Suspect]
     Active Substance: MYCOPHENOLATE MOFETIL
     Indication: Acute graft versus host disease
  14. RITUXIMAB [Suspect]
     Active Substance: RITUXIMAB
     Indication: Bone marrow conditioning regimen
     Dosage: RECEIVED ON 2 OCCASIONS
     Route: 065
  15. SIROLIMUS [Suspect]
     Active Substance: SIROLIMUS
     Indication: Acute lymphocytic leukaemia refractory
     Dosage: UNK
     Route: 065
  16. TACROLIMUS [Suspect]
     Active Substance: TACROLIMUS
     Indication: Allogenic stem cell transplantation
     Dosage: UNK
     Route: 065
  17. THIOTEPA [Suspect]
     Active Substance: THIOTEPA
     Indication: Acute lymphocytic leukaemia (in remission)
     Route: 065
  18. COTRIMOXAZOLE [Concomitant]
     Active Substance: SULFAMETHOXAZOLE\TRIMETHOPRIM
     Indication: Product used for unknown indication
     Dosage: UNK, DURING SECOND PERIPHERAL BLOOD HSCT
     Route: 065
  19. COTRIMOXAZOLE [Concomitant]
     Active Substance: SULFAMETHOXAZOLE\TRIMETHOPRIM
     Indication: Antifungal prophylaxis
  20. HIZENTRA [Concomitant]
     Active Substance: HUMAN IMMUNOGLOBULIN G
     Indication: Immunoglobulin therapy
     Dosage: 0.15 G/KG PER WEEK
     Route: 058
  21. PRIVIGEN [Concomitant]
     Active Substance: HUMAN IMMUNOGLOBULIN G
     Indication: Bone marrow conditioning regimen
     Route: 065

REACTIONS (6)
  - Acute graft versus host disease [Unknown]
  - Hypogammaglobulinaemia [Recovered/Resolved]
  - Epstein-Barr virus infection reactivation [Unknown]
  - Graft versus host disease in gastrointestinal tract [Unknown]
  - Graft versus host disease in skin [Unknown]
  - Graft versus host disease in liver [Unknown]
